FAERS Safety Report 18992872 (Version 1)
Quarter: 2021Q1

REPORT INFORMATION
  Report Type: Spontaneous
  Country: AU (occurrence: AU)
  Receive Date: 20210310
  Receipt Date: 20210310
  Transmission Date: 20210420
  Serious: Yes (Other)
  Sender: FDA-Public Use
  Company Number: AU-GILEAD-2021-0520195

PATIENT
  Sex: Female

DRUGS (2)
  1. AMBRISENTAN [Suspect]
     Active Substance: AMBRISENTAN
     Indication: PRODUCT USED FOR UNKNOWN INDICATION
     Dosage: UNK
     Route: 065
     Dates: end: 202101
  2. TADALIS [Suspect]
     Active Substance: TADALAFIL
     Indication: PRODUCT USED FOR UNKNOWN INDICATION
     Dosage: 20 MG, QD
     Route: 065

REACTIONS (10)
  - Blister [Unknown]
  - Flushing [Unknown]
  - Skin disorder [Unknown]
  - Pulmonary pain [Unknown]
  - Dyspnoea [Unknown]
  - Tinnitus [Unknown]
  - Thrombosis [Unknown]
  - Adverse drug reaction [Unknown]
  - Deafness unilateral [Unknown]
  - Headache [Unknown]
